FAERS Safety Report 12890730 (Version 1)
Quarter: 2016Q4

REPORT INFORMATION
  Report Type: Spontaneous
  Country: US (occurrence: US)
  Receive Date: 20161027
  Receipt Date: 20161027
  Transmission Date: 20170207
  Serious: No
  Sender: FDA-Public Use
  Company Number: US-JAZZ-2016-US-015797

PATIENT
  Sex: Female

DRUGS (58)
  1. BUMETANIDE. [Concomitant]
     Active Substance: BUMETANIDE
  2. IBUPROFEN. [Concomitant]
     Active Substance: IBUPROFEN
  3. IRON [Concomitant]
     Active Substance: IRON
  4. LAMICTAL [Concomitant]
     Active Substance: LAMOTRIGINE
  5. REQUIP [Concomitant]
     Active Substance: ROPINIROLE HYDROCHLORIDE
  6. FLUCONAZOLE. [Concomitant]
     Active Substance: FLUCONAZOLE
  7. TESSALON [Concomitant]
     Active Substance: BENZONATATE
  8. OMEPRAZOLE DR [Concomitant]
     Active Substance: OMEPRAZOLE
  9. LYRICA [Concomitant]
     Active Substance: PREGABALIN
  10. AMLODIPINE BESYLATE. [Concomitant]
     Active Substance: AMLODIPINE BESYLATE
  11. GUAIATUSS AC [Concomitant]
  12. LEVAQUIN [Concomitant]
     Active Substance: LEVOFLOXACIN
  13. LEXAPRO [Concomitant]
     Active Substance: ESCITALOPRAM OXALATE
  14. AMOXIL [Concomitant]
     Active Substance: AMOXICILLIN
  15. AZITHROMYCIN ANHYDROUS. [Concomitant]
     Active Substance: AZITHROMYCIN ANHYDROUS
  16. INDERAL LA [Concomitant]
     Active Substance: PROPRANOLOL HYDROCHLORIDE
  17. CRESTOR [Concomitant]
     Active Substance: ROSUVASTATIN CALCIUM
  18. KLOR-CON [Concomitant]
     Active Substance: POTASSIUM CHLORIDE
  19. BUTALBITAL [Concomitant]
     Active Substance: BUTALBITAL
  20. CLOBETASOL [Concomitant]
     Active Substance: CLOBETASOL
  21. CYMBALTA [Concomitant]
     Active Substance: DULOXETINE HYDROCHLORIDE
  22. DIAZEPAM. [Concomitant]
     Active Substance: DIAZEPAM
  23. FLEXERIL [Concomitant]
     Active Substance: CYCLOBENZAPRINE HYDROCHLORIDE
  24. XYREM [Suspect]
     Active Substance: SODIUM OXYBATE
     Indication: CATAPLEXY
     Dosage: DOSE ADJUSTMENTS
     Route: 048
     Dates: start: 201109, end: 201605
  25. VALTREX [Concomitant]
     Active Substance: VALACYCLOVIR HYDROCHLORIDE
  26. ACYCLOVIR. [Concomitant]
     Active Substance: ACYCLOVIR
  27. BYETTA [Concomitant]
     Active Substance: EXENATIDE
  28. POTASSIUM ACETATE. [Concomitant]
     Active Substance: POTASSIUM ACETATE
  29. SENNOSIDES. [Concomitant]
     Active Substance: SENNOSIDES
  30. TRAMADOL HCL [Concomitant]
     Active Substance: TRAMADOL HYDROCHLORIDE
  31. ABILIFY [Concomitant]
     Active Substance: ARIPIPRAZOLE
  32. CLONAZEPAM. [Concomitant]
     Active Substance: CLONAZEPAM
  33. PROVENTIL HFA [Concomitant]
     Active Substance: ALBUTEROL SULFATE
  34. DYAZIDE [Concomitant]
     Active Substance: HYDROCHLOROTHIAZIDE\TRIAMTERENE
  35. MUCINEX ER [Concomitant]
  36. ZOCOR [Concomitant]
     Active Substance: SIMVASTATIN
  37. MACA [Concomitant]
  38. DIOVAN [Concomitant]
     Active Substance: VALSARTAN
  39. AUGMENTIN [Concomitant]
     Active Substance: AMOXICILLIN\CLAVULANATE POTASSIUM
  40. EXFORGE [Concomitant]
     Active Substance: AMLODIPINE BESYLATE\VALSARTAN
  41. MELOXICAM. [Concomitant]
     Active Substance: MELOXICAM
  42. TOPAMAX [Concomitant]
     Active Substance: TOPIRAMATE
  43. BROMFED [Concomitant]
     Active Substance: BROMPHENIRAMINE MALEATE\DEXTROMETHORPHAN HYDROBROMIDE\PSEUDOEPHEDRINE HYDROCHLORIDE
  44. BRINTELLIX [Concomitant]
     Active Substance: VORTIOXETINE HYDROBROMIDE
  45. ATIVAN [Concomitant]
     Active Substance: LORAZEPAM
  46. PREDNISOLONE. [Concomitant]
     Active Substance: PREDNISOLONE
  47. PREDNISONE. [Concomitant]
     Active Substance: PREDNISONE
  48. SEROQUEL [Concomitant]
     Active Substance: QUETIAPINE FUMARATE
  49. XYREM [Suspect]
     Active Substance: SODIUM OXYBATE
     Indication: NARCOLEPSY
     Dosage: 2.25 G, BID
     Route: 048
     Dates: start: 201106, end: 201109
  50. XYREM [Suspect]
     Active Substance: SODIUM OXYBATE
     Dosage: 4 G, BID
     Route: 048
     Dates: start: 201605
  51. ZETIA [Concomitant]
     Active Substance: EZETIMIBE
  52. CLONIDINE HCL [Concomitant]
     Active Substance: CLONIDINE HYDROCHLORIDE
  53. CELEBREX [Concomitant]
     Active Substance: CELECOXIB
  54. GABAPENTIN. [Concomitant]
     Active Substance: GABAPENTIN
  55. PROPRANOLOL [Concomitant]
     Active Substance: PROPRANOLOL\PROPRANOLOL HYDROCHLORIDE
  56. VALSARTAN. [Concomitant]
     Active Substance: VALSARTAN
  57. ADDERALL [Concomitant]
     Active Substance: AMPHETAMINE ASPARTATE\AMPHETAMINE SULFATE\DEXTROAMPHETAMINE SACCHARATE\DEXTROAMPHETAMINE SULFATE
  58. ALBUTEROL SULFATE HFA [Concomitant]
     Active Substance: ALBUTEROL SULFATE

REACTIONS (1)
  - Antinuclear antibody positive [Unknown]
